FAERS Safety Report 12336118 (Version 1)
Quarter: 2016Q2

REPORT INFORMATION
  Report Type: Spontaneous
  Country: US (occurrence: US)
  Receive Date: 20160505
  Receipt Date: 20160505
  Transmission Date: 20160815
  Serious: No
  Sender: FDA-Public Use
  Company Number: US-PFIZER INC-2016228393

PATIENT
  Age: 58 Year
  Sex: Male
  Weight: 100.7 kg

DRUGS (15)
  1. EFFEXOR [Suspect]
     Active Substance: VENLAFAXINE HYDROCHLORIDE
     Dosage: AROUND 40MG TABLET DAILY
     Dates: start: 2007
  2. CHONDROITIN/GLUCOSAMINE [Concomitant]
     Indication: ARTHRITIS
  3. VITAMIN D [Concomitant]
     Active Substance: CHOLECALCIFEROL
     Indication: BLOOD PRESSURE ABNORMAL
     Dosage: 2000MG CAPSULE BY MOUTH ONCE A DAY
     Route: 048
     Dates: start: 2012
  4. VITAMIN C [Concomitant]
     Active Substance: ASCORBIC ACID
     Indication: SUPPLEMENTATION THERAPY
     Dosage: 2000MG TABLET BY MOUTH ONCE A DAY
     Route: 048
  5. CHONDROITIN/GLUCOSAMINE [Concomitant]
     Indication: ARTHROPATHY
     Dosage: 2 DF,  [GLUCOSAMINE 1500MG]/[CHONDROITIN 1200MG] CAPSULES BY MOUTH, TWO A DAY
     Route: 048
     Dates: start: 2006
  6. VITAMIN D [Concomitant]
     Active Substance: CHOLECALCIFEROL
     Indication: CARDIAC DISORDER
  7. EFFEXOR [Suspect]
     Active Substance: VENLAFAXINE HYDROCHLORIDE
     Indication: DEPRESSION
     Dosage: UNK
  8. EFFEXOR [Suspect]
     Active Substance: VENLAFAXINE HYDROCHLORIDE
     Dosage: REMOVE A QUARTER OF HIS 75MG TABLET TO REDUCE THE DOSAGE.
  9. AMLODIPINE/BENAZEPRIL [Concomitant]
     Active Substance: AMLODIPINE BESYLATE\BENAZEPRIL HYDROCHLORIDE
     Indication: BLOOD PRESSURE ABNORMAL
     Dosage: [AMLODIPINE 10MG]/[BENAZEPRIL 20MG],  CAPSULE BY MOUTH ONCE A DAY
     Route: 048
     Dates: start: 2000
  10. METFORMIN [Concomitant]
     Active Substance: METFORMIN HYDROCHLORIDE
     Indication: GLUCOSE TOLERANCE IMPAIRED
     Dosage: 500MG TABLET BY MOUTH ONCE A DAY
     Route: 048
     Dates: start: 2011
  11. SPIRONOLACTONE. [Concomitant]
     Active Substance: SPIRONOLACTONE
     Indication: BLOOD PRESSURE ABNORMAL
     Dosage: 25MG TABLET BY MOUTH ONCE PER DAY
     Route: 048
     Dates: start: 2010
  12. ATORVASTATIN [Concomitant]
     Active Substance: ATORVASTATIN
     Indication: BLOOD CHOLESTEROL ABNORMAL
     Dosage: UNK, DAILY
     Route: 048
  13. ATORVASTATIN [Concomitant]
     Active Substance: ATORVASTATIN
     Dosage: 40 MG, ALTERNATE DAY
     Route: 048
  14. ALLOPURINOL. [Concomitant]
     Active Substance: ALLOPURINOL
     Indication: NEPHROLITHIASIS
     Dosage: 100MG TABLET ONCE A DAY
     Dates: start: 2015
  15. ALLOPURINOL. [Concomitant]
     Active Substance: ALLOPURINOL
     Indication: BLOOD URIC ACID

REACTIONS (3)
  - Intentional product use issue [Unknown]
  - Disorientation [Unknown]
  - Drug ineffective [Unknown]

NARRATIVE: CASE EVENT DATE: 2007
